FAERS Safety Report 6212987-5 (Version None)
Quarter: 2009Q2

REPORT INFORMATION
  Report Type: 
  Country: None (occurrence: None)
  Receive Date: 20090601
  Receipt Date: 20090521
  Transmission Date: 20091009
  Serious: Yes (Hospitalization)
  Sender: FDA-Public Use
  Company Number: 2009005944

PATIENT
  Age: 62 Year
  Sex: Male

DRUGS (2)
  1. TRISENOX [Suspect]
     Indication: SMALL CELL LUNG CANCER STAGE UNSPECIFIED
     Dosage: INTRAVENOUS/5 DOSES
     Route: 042
  2. NSAID'S (NSAID'S) [Concomitant]

REACTIONS (11)
  - CHEST X-RAY ABNORMAL [None]
  - CONFUSIONAL STATE [None]
  - EROSIVE OESOPHAGITIS [None]
  - HAEMATEMESIS [None]
  - HYPOPHAGIA [None]
  - HYPOTENSION [None]
  - LETHARGY [None]
  - MIOSIS [None]
  - PAIN [None]
  - SKIN TURGOR DECREASED [None]
  - SOMNOLENCE [None]
